FAERS Safety Report 6254638-X (Version None)
Quarter: 2009Q3

REPORT INFORMATION
  Report Type: 
  Country: None (occurrence: None)
  Receive Date: 20090702
  Receipt Date: 20090624
  Transmission Date: 20100115
  Serious: Yes (Hospitalization)
  Sender: FDA-Public Use
  Company Number: B0574403A

PATIENT
  Sex: Female
  Weight: 40 kg

DRUGS (14)
  1. VALTREX [Suspect]
     Indication: HERPES SIMPLEX
     Dosage: 500MG TWICE PER DAY
     Route: 048
     Dates: start: 20090507, end: 20090509
  2. ARASENA-A [Concomitant]
     Indication: HERPES SIMPLEX
     Route: 061
     Dates: start: 20090507
  3. ASPIRIN [Concomitant]
     Dosage: 100MG PER DAY
     Route: 048
  4. MEVALOTIN [Concomitant]
     Dosage: 5MG PER DAY
     Route: 048
  5. ARTIST [Concomitant]
     Dosage: 10MG PER DAY
     Route: 048
  6. PANALDINE [Concomitant]
     Dosage: 200MG PER DAY
     Route: 048
  7. EBRANTIL [Concomitant]
     Dosage: 30MG PER DAY
     Route: 048
  8. HERBESSER R [Concomitant]
     Dosage: 100MG PER DAY
     Route: 048
  9. FRANDOL S [Concomitant]
     Dosage: 40MG PER DAY
     Route: 062
  10. RHYTHMY [Concomitant]
     Indication: INSOMNIA
     Route: 048
  11. BLOPRESS [Concomitant]
     Dosage: 8MG PER DAY
     Route: 048
  12. AMLODIPINE [Concomitant]
     Route: 048
  13. FUROSEMIDE INTENSOL [Concomitant]
     Dosage: 20MG PER DAY
     Route: 048
  14. HAEMODIALYSIS [Concomitant]

REACTIONS (7)
  - ALTERED STATE OF CONSCIOUSNESS [None]
  - ASTHENIA [None]
  - DELIRIUM [None]
  - DYSARTHRIA [None]
  - ENCEPHALOPATHY [None]
  - HEADACHE [None]
  - OVERDOSE [None]
